FAERS Safety Report 18113976 (Version 1)
Quarter: 2020Q3

REPORT INFORMATION
  Report Type: Report from Study
  Country: US (occurrence: US)
  Receive Date: 20200805
  Receipt Date: 20200805
  Transmission Date: 20201103
  Serious: Yes (Hospitalization, Other)
  Sender: FDA-Public Use
  Company Number: US-DOVA PHARMACEUTICALS INC.-DOV-000600

PATIENT
  Sex: Female
  Weight: 154.2 kg

DRUGS (3)
  1. DOPTELET [Suspect]
     Active Substance: AVATROMBOPAG MALEATE
     Indication: IMMUNE THROMBOCYTOPENIA
     Dosage: 20 MG, UNK
     Route: 048
     Dates: start: 202006
  2. DOPTELET [Suspect]
     Active Substance: AVATROMBOPAG MALEATE
     Dosage: 20 MG, QD
     Dates: start: 20200729
  3. DOPTELET [Suspect]
     Active Substance: AVATROMBOPAG MALEATE
     Dosage: 20 MG ROTATED WITH 40 MG EVERY OTHER DAY
     Route: 048
     Dates: end: 202006

REACTIONS (4)
  - Paralysis [Recovered/Resolved]
  - Nervous system disorder [Recovered/Resolved]
  - Illness [Recovered/Resolved]
  - Aphasia [Recovered/Resolved]
